FAERS Safety Report 4704147-1 (Version None)
Quarter: 2005Q2

REPORT INFORMATION
  Report Type: 
  Country: None (occurrence: None)
  Receive Date: 20050629
  Receipt Date: 20050616
  Transmission Date: 20051028
  Serious: Yes (Life-Threatening, Other)
  Sender: FDA-Public Use
  Company Number: HQWYE215703JUN05

PATIENT
  Age: 52 Year
  Sex: Female

DRUGS (6)
  1. EUPANTOL (PANTOPRAZOLE, INJECTION) [Suspect]
     Dosage: ^SOME TIME (S) SOME DF^, INTRAVENOUS
     Route: 042
     Dates: start: 20050303, end: 20050324
  2. CIFLOX (CIPROFLOXAICN, ) [Suspect]
     Indication: PROPHYLAXIS
     Dosage: 200 MG/100 ML 'SOME TIME (S) SOME DF^, INTRAVNEOUS
     Route: 042
     Dates: start: 20050206, end: 20050315
  3. DIGOXIN [Suspect]
     Indication: CARDIAC FAILURE
     Dosage: 0.25 MG ^SOME TIME (S), SOEM DF^, ORAL
     Route: 048
     Dates: start: 20050322, end: 20050324
  4. DIPRIVAN [Suspect]
     Indication: DRUG TOXICITY
     Dosage: 500 MG/50 ML ^SOME TIME (S) SOME DF^
     Route: 042
     Dates: start: 20050315, end: 20050325
  5. TAZOCILLINE (PIPERACILLIN/TABOBACTAM, INJECTION) [Suspect]
     Dosage: 2 F/250 MG ^SOME TIME (S) SOME DF^, INTRAVENOUS
     Route: 042
     Dates: start: 20050302, end: 20050315
  6. ULTIVA [Suspect]
     Dosage: ^SOME TIME (S) SOME DF^, INTRAVENOUS
     Route: 042
     Dates: start: 20050316, end: 20050325

REACTIONS (2)
  - AGRANULOCYTOSIS [None]
  - DRUG TOXICITY [None]
